FAERS Safety Report 21303040 (Version 2)
Quarter: 2022Q3

REPORT INFORMATION
  Report Type: Report from Study
  Country: AU (occurrence: AU)
  Receive Date: 20220907
  Receipt Date: 20220922
  Transmission Date: 20221026
  Serious: Yes (Hospitalization, Other)
  Sender: FDA-Public Use
  Company Number: AU-BRISTOL-MYERS SQUIBB COMPANY-2022-051353

PATIENT
  Age: 54 Year
  Sex: Male
  Weight: 51.80 kg

DRUGS (1)
  1. AZACITIDINE [Suspect]
     Active Substance: AZACITIDINE
     Indication: Acute myeloid leukaemia
     Route: 058
     Dates: start: 20220411, end: 20220518

REACTIONS (2)
  - Febrile neutropenia [Recovered/Resolved]
  - Hepatic infection [Recovered/Resolved]

NARRATIVE: CASE EVENT DATE: 20220523
